FAERS Safety Report 4837494-3 (Version None)
Quarter: 2005Q4

REPORT INFORMATION
  Report Type: 
  Country: None (occurrence: None)
  Receive Date: 20051128
  Receipt Date: 20051110
  Transmission Date: 20060501
  Serious: Yes (Hospitalization)
  Sender: FDA-Public Use
  Company Number: FR-GLAXOSMITHKLINE-B0400052A

PATIENT
  Age: 73 Year
  Sex: Female

DRUGS (7)
  1. CLAMOXYL [Suspect]
     Dosage: 6G PER DAY
     Route: 048
     Dates: start: 20050919, end: 20051010
  2. ESIDRIX [Suspect]
     Indication: ESSENTIAL HYPERTENSION
     Dosage: 25MG PER DAY
     Route: 048
     Dates: start: 20050929, end: 20051014
  3. LEVOTHYROX [Concomitant]
     Dosage: 50MCG PER DAY
     Route: 048
  4. CORDARONE [Concomitant]
     Dosage: 200MG PER DAY
     Route: 048
  5. FOSAMAX [Concomitant]
     Dosage: 70MG PER DAY
     Route: 048
  6. AMLOR [Concomitant]
     Indication: ESSENTIAL HYPERTENSION
     Dosage: 5MG PER DAY
     Route: 048
  7. PREVISCAN [Concomitant]
     Route: 065

REACTIONS (5)
  - DRY SKIN [None]
  - FEELING HOT [None]
  - PHOTOSENSITIVITY REACTION [None]
  - RASH ERYTHEMATOUS [None]
  - TOXIC SKIN ERUPTION [None]
